FAERS Safety Report 10534682 (Version 3)
Quarter: 2014Q4

REPORT INFORMATION
  Report Type: Report from Study
  Country: US (occurrence: US)
  Receive Date: 20141022
  Receipt Date: 20141216
  Transmission Date: 20150529
  Serious: Yes (Hospitalization)
  Sender: FDA-Public Use
  Company Number: US-009507513-1410USA001932

PATIENT
  Age: 51 Year
  Sex: Female
  Weight: 77.98 kg

DRUGS (28)
  1. PRILOSEC [Concomitant]
     Active Substance: OMEPRAZOLE MAGNESIUM
     Indication: DYSPEPSIA
     Dosage: 40 MG, QD
     Route: 048
     Dates: start: 20100101
  2. CLARITIN [Concomitant]
     Active Substance: LORATADINE
     Indication: RHINITIS ALLERGIC
     Dosage: 1 TABLET, DAILY AS NEEDED
     Route: 048
     Dates: start: 20130101
  3. SYMBICORT [Concomitant]
     Active Substance: BUDESONIDE\FORMOTEROL FUMARATE DIHYDRATE
     Indication: DYSPNOEA
     Dosage: 2 PUFF, Q12H, TWICE A DAY
     Route: 055
     Dates: start: 20140407
  4. ALBUTEROL SULFATE. [Concomitant]
     Active Substance: ALBUTEROL SULFATE
     Indication: DYSPNOEA
     Dosage: 1-2 PUFFS, EVERY 6 HOURS AS NEEDED, INHALATION
     Route: 055
     Dates: start: 20140407
  5. HYDROCODONE [Concomitant]
     Active Substance: HYDROCODONE
     Indication: ARTHRALGIA
  6. CLOTRIMAZOLE. [Concomitant]
     Active Substance: CLOTRIMAZOLE
     Indication: CANDIDA INFECTION
     Dosage: 10 MG, 5 TIMES A DAY AS NEEDED
     Route: 048
     Dates: start: 20140507, end: 20140917
  7. TRAMADOL HYDROCHLORIDE. [Concomitant]
     Active Substance: TRAMADOL HYDROCHLORIDE
     Indication: ARTHRALGIA
     Dosage: 200 MG, QD
     Route: 048
     Dates: start: 20140704
  8. TEMAZEPAM. [Concomitant]
     Active Substance: TEMAZEPAM
     Indication: INSOMNIA
     Dosage: 15 MG, 1-2 CAPS AT BEDTIME AS NEEDED
     Route: 048
     Dates: start: 20140704
  9. KLONOPIN [Concomitant]
     Active Substance: CLONAZEPAM
     Indication: INSOMNIA
     Dosage: UNK
     Dates: start: 20140101
  10. CHONDROITIN [Concomitant]
     Active Substance: CHONDROITIN
     Indication: ROUTINE HEALTH MAINTENANCE
     Dosage: 1 TABLET, (ALSO REPORTED AS 2 TABS TWICE DAILY)
     Route: 048
     Dates: start: 20140521
  11. CYMBALTA [Concomitant]
     Active Substance: DULOXETINE HYDROCHLORIDE
     Indication: DEPRESSION
     Dosage: 30 MG, ONCE DAILY TWO WEEKS THEN TWICE A DAY
     Route: 048
     Dates: start: 20140702
  12. DECADRON [Concomitant]
     Active Substance: DEXAMETHASONE
     Indication: PREMEDICATION
     Dosage: 4 MG, 2 TABS 12 +6 HRS PRIOR TO CHEMOTHERAPY
     Route: 048
     Dates: start: 20140730
  13. ALBUTEROL (+) IPRATROPIUM BROMIDE [Concomitant]
     Indication: DYSPNOEA
     Dosage: 3 ML, EVERY 6 HOURS AS NEEDED, INHALATION
     Route: 055
     Dates: start: 20140214
  14. TYLENOL EXTRA STRENGTH [Concomitant]
     Active Substance: ACETAMINOPHEN
     Indication: OSTEOARTHRITIS
     Dosage: DAILY DOSE 1000 MG, TWICE A DAY AS NEEDED
     Route: 048
     Dates: start: 20140604
  15. HYDROCODONE [Concomitant]
     Active Substance: HYDROCODONE
     Indication: OSTEOARTHRITIS
     Dosage: 7.5 MG, EVERY 6 HOURS AS NEEDED
     Route: 048
     Dates: start: 20140704
  16. ALPRAZOLAM. [Concomitant]
     Active Substance: ALPRAZOLAM
     Indication: ANXIETY
     Dosage: 0.5 MG, 1-2 TABS EVERY 8 HOURS AS NEEDED
     Route: 048
     Dates: start: 20140704
  17. LEVAQUIN [Concomitant]
     Active Substance: LEVOFLOXACIN
     Indication: CHRONIC OBSTRUCTIVE PULMONARY DISEASE
     Dosage: 750 MG, QID
     Route: 048
     Dates: start: 20140912, end: 20140916
  18. NAPROXEN. [Concomitant]
     Active Substance: NAPROXEN
     Indication: BACK PAIN
  19. BYSTOLIC [Concomitant]
     Active Substance: NEBIVOLOL HYDROCHLORIDE
     Indication: HYPERTENSION
     Dosage: 5 MG, QD
     Route: 048
     Dates: start: 20110201
  20. FOLIC ACID. [Concomitant]
     Active Substance: FOLIC ACID
     Indication: ROUTINE HEALTH MAINTENANCE
     Dosage: 1 MG, QD
     Route: 048
     Dates: start: 20130101
  21. NAPROXEN. [Concomitant]
     Active Substance: NAPROXEN
     Indication: PAIN
     Dosage: UNK
     Dates: start: 20130101
  22. DIAZEPAM. [Concomitant]
     Active Substance: DIAZEPAM
     Indication: ANXIETY
     Dosage: UNK
     Route: 048
     Dates: start: 20140101
  23. CAMPHO-PHENIQUE LIQUID [Concomitant]
     Indication: SKIN IRRITATION
     Dosage: DOSE 1, UNIT: OTHER, PRN
     Route: 061
     Dates: start: 20140312
  24. PREDNISONE. [Concomitant]
     Active Substance: PREDNISONE
     Indication: CHRONIC OBSTRUCTIVE PULMONARY DISEASE
     Dosage: 20 MG, 2 TABLETS DAILY X 4
     Dates: start: 20140912, end: 20140916
  25. DIFLUCAN [Concomitant]
     Active Substance: FLUCONAZOLE
     Indication: CANDIDA INFECTION
     Dosage: 100 MG, TWO TODAY AND ONE DAILY
     Route: 048
     Dates: start: 20140917
  26. PEMBROLIZUMAB. [Suspect]
     Active Substance: PEMBROLIZUMAB
     Indication: NON-SMALL CELL LUNG CANCER
     Dosage: 10 MG/KG, Q2WEEKS
     Route: 042
     Dates: start: 20140211, end: 20140820
  27. PEMBROLIZUMAB. [Suspect]
     Active Substance: PEMBROLIZUMAB
     Dosage: 10 MG/KG, Q2WEEKS
     Route: 042
     Dates: start: 20140917, end: 20140917
  28. TYLENOL EXTRA STRENGTH [Concomitant]
     Active Substance: ACETAMINOPHEN
     Indication: PAIN

REACTIONS (1)
  - Bronchospasm [Not Recovered/Not Resolved]

NARRATIVE: CASE EVENT DATE: 20140927
